FAERS Safety Report 8804642 (Version 1)
Quarter: 2012Q4

REPORT INFORMATION
  Report Type: Spontaneous
  Country: GB (occurrence: None)
  Receive Date: 20120917
  Receipt Date: 20120917
  Transmission Date: 20130627
  Serious: Yes (Other)
  Sender: FDA-Public Use
  Company Number: AUR-APU-2012-03866

PATIENT
  Age: 69 Year
  Sex: Male

DRUGS (2)
  1. FLUOXETINE [Suspect]
  2. SIMVASTATIN (SIMVASTATIN) [Concomitant]

REACTIONS (4)
  - Nausea [None]
  - Altered state of consciousness [None]
  - Sleep disorder [None]
  - Insomnia [None]
